FAERS Safety Report 5405845-7 (Version None)
Quarter: 2007Q3

REPORT INFORMATION
  Report Type: 
  Country: None (occurrence: None)
  Receive Date: 20070802
  Receipt Date: 20070718
  Transmission Date: 20080115
  Serious: Yes (Hospitalization)
  Sender: FDA-Public Use
  Company Number: 2007BI014077

PATIENT
  Age: 48 Year
  Sex: Female

DRUGS (5)
  1. TYSABRI [Suspect]
     Indication: MULTIPLE SCLEROSIS
     Dosage: 300 MG;QM; IV
     Route: 042
     Dates: start: 20061007
  2. DARVOCET [Concomitant]
  3. TYLENOL (CAPLET) [Concomitant]
  4. REGLAN [Concomitant]
  5. PRILOSEC [Concomitant]

REACTIONS (18)
  - ASTHMA [None]
  - ATELECTASIS [None]
  - BACTERIAL INFECTION [None]
  - CANDIDIASIS [None]
  - CONDITION AGGRAVATED [None]
  - CULTURE POSITIVE [None]
  - GASTROOESOPHAGEAL REFLUX DISEASE [None]
  - HYPERTENSION [None]
  - METAMYELOCYTE COUNT INCREASED [None]
  - MULTIPLE SCLEROSIS [None]
  - MYELOCYTE PRESENT [None]
  - NASAL POLYPS [None]
  - PNEUMONIA BACTERIAL [None]
  - RED BLOOD CELL COUNT DECREASED [None]
  - RED BLOOD CELL NUCLEATED MORPHOLOGY PRESENT [None]
  - RESPIRATORY TRACT INFECTION FUNGAL [None]
  - SINUSITIS [None]
  - WHITE BLOOD CELL COUNT INCREASED [None]
